FAERS Safety Report 7981890-2 (Version None)
Quarter: 2011Q4

REPORT INFORMATION
  Report Type: 
  Country: None (occurrence: None)
  Receive Date: 20111215
  Receipt Date: 20111208
  Transmission Date: 20120403
  Serious: Yes (Other)
  Sender: FDA-Public Use
  Company Number: TW-JNJFOC-20111204779

PATIENT
  Age: 64 Year
  Sex: Male

DRUGS (2)
  1. MINOXIDIL [Suspect]
     Indication: HAIR GROWTH ABNORMAL
     Route: 061
     Dates: start: 20111124, end: 20111201
  2. MINOXIDIL [Suspect]
     Route: 061

REACTIONS (4)
  - DRY SKIN [None]
  - SKIN EXFOLIATION [None]
  - THERMAL BURN [None]
  - SCAR [None]
